FAERS Safety Report 14733660 (Version 2)
Quarter: 2018Q3

REPORT INFORMATION
  Report Type: Report from Study
  Country: None (occurrence: US)
  Receive Date: 20180409
  Receipt Date: 20180907
  Transmission Date: 20181010
  Serious: Yes (Hospitalization)
  Sender: FDA-Public Use
  Company Number: US-ABBVIE-18K-163-2315276-00

PATIENT
  Age: 50 Year
  Sex: Female
  Weight: 119.86 kg

DRUGS (3)
  1. HUMIRA [Suspect]
     Active Substance: ADALIMUMAB
     Indication: CROHN^S DISEASE
     Route: 058
     Dates: start: 201801, end: 201803
  2. HUMIRA [Suspect]
     Active Substance: ADALIMUMAB
     Route: 058
     Dates: start: 201808
  3. HUMIRA [Suspect]
     Active Substance: ADALIMUMAB
     Indication: RHEUMATOID ARTHRITIS
     Dosage: COUPLE YEARS
     Route: 058
     Dates: start: 2016, end: 201711

REACTIONS (7)
  - Infected skin ulcer [Not Recovered/Not Resolved]
  - Bronchitis [Recovered/Resolved]
  - Diabetic foot [Not Recovered/Not Resolved]
  - Large intestine polyp [Recovered/Resolved]
  - Influenza [Recovered/Resolved]
  - Crohn^s disease [Not Recovered/Not Resolved]
  - Diverticulum [Not Recovered/Not Resolved]

NARRATIVE: CASE EVENT DATE: 201710
